FAERS Safety Report 4997468-9 (Version None)
Quarter: 2006Q2

REPORT INFORMATION
  Report Type: 
  Country: None (occurrence: None)
  Receive Date: 20060509
  Receipt Date: 20060214
  Transmission Date: 20061013
  Serious: Yes (Hospitalization, Disabling)
  Sender: FDA-Public Use
  Company Number: DE-MERCK-0602DEU00086

PATIENT
  Age: 53 Year
  Sex: Male
  Weight: 109 kg

DRUGS (2)
  1. VIOXX [Suspect]
     Indication: PAIN
     Route: 048
     Dates: start: 20010612, end: 20030412
  2. OMEPRAZOLE [Concomitant]
     Route: 065
     Dates: start: 20010601

REACTIONS (20)
  - ACUTE MYOCARDIAL INFARCTION [None]
  - AUTONOMIC NERVOUS SYSTEM IMBALANCE [None]
  - CARDIAC DISORDER [None]
  - CORONARY ARTERY INSUFFICIENCY [None]
  - DUODENAL ULCER [None]
  - FACE INJURY [None]
  - FACIAL BONES FRACTURE [None]
  - FALL [None]
  - HAEMATOMA [None]
  - HEARING IMPAIRED [None]
  - HELICOBACTER INFECTION [None]
  - HYPERLIPIDAEMIA [None]
  - HYPERURICAEMIA [None]
  - HYPOACUSIS [None]
  - NAUSEA [None]
  - RHINITIS [None]
  - SLEEP APNOEA SYNDROME [None]
  - SYNCOPE [None]
  - TOOTH LOSS [None]
  - VENTRICULAR FIBRILLATION [None]
